FAERS Safety Report 17114543 (Version 2)
Quarter: 2020Q1

REPORT INFORMATION
  Report Type: Spontaneous
  Country: BE (occurrence: BE)
  Receive Date: 20191205
  Receipt Date: 20200102
  Transmission Date: 20200409
  Serious: Yes (Life-Threatening, Hospitalization, Disabling, Other)
  Sender: FDA-Public Use
  Company Number: BE-AUROBINDO-AUR-APL-2017-36435

PATIENT
  Age: 61 Year
  Sex: Male

DRUGS (40)
  1. VINCRISTINE [Suspect]
     Active Substance: VINCRISTINE
     Indication: KAPOSI^S SARCOMA
     Dosage: UNK,R-CHOP
     Route: 065
  2. VINCRISTINE [Suspect]
     Active Substance: VINCRISTINE
     Dosage: UNK
     Route: 065
  3. CARMUSTINE;CYTARABINE;ETOPOSIDE;MELPHALAN [Suspect]
     Active Substance: CARMUSTINE\CYTARABINE\ETOPOSIDE\MELPHALAN
     Dosage: 800 MILLIGRAM/SQ. METER, CYCLICAL (200 MILLIGRAM/SQ. METER, DAY 2-5, CYCLIC)
     Route: 065
  4. CARMUSTINE;CYTARABINE;ETOPOSIDE;MELPHALAN [Suspect]
     Active Substance: CARMUSTINE\CYTARABINE\ETOPOSIDE\MELPHALAN
     Dosage: 140 MILLIGRAM/SQ. METER, CYCLICAL, DAY 6 CYCLIC, FULL DOSE BEAM
     Route: 065
  5. DEXAMETHASONE. [Suspect]
     Active Substance: DEXAMETHASONE
     Indication: NON-HODGKIN^S LYMPHOMA
     Dosage: UNK, CYCLICAL, R-DHAP
     Route: 065
  6. CYTARABINE. [Suspect]
     Active Substance: CYTARABINE
     Indication: NON-HODGKIN^S LYMPHOMA
     Dosage: UNK, CYCLICAL, R-DHAP
     Route: 065
  7. CISPLATIN. [Suspect]
     Active Substance: CISPLATIN
     Indication: NON-HODGKIN^S LYMPHOMA
     Dosage: UNK, CYCLICAL, R-DHAP
     Route: 065
  8. ETOPOSIDE. [Suspect]
     Active Substance: ETOPOSIDE
     Indication: NON-HODGKIN^S LYMPHOMA
     Dosage: UNK, R-ICE
     Route: 065
  9. ETOPOSIDE. [Suspect]
     Active Substance: ETOPOSIDE
     Dosage: 15 MILLIGRAM/SQ. METER, CYCLICAL, ON DAY 2 TO 5
     Route: 065
  10. CARMUSTINE. [Suspect]
     Active Substance: CARMUSTINE
     Dosage: 300 MILLIGRAM/SQ. METER, CYCLICAL, ON DAY 1
     Route: 065
  11. CISPLATIN\CYTARABINE\DEXAMETHASONE [Suspect]
     Active Substance: CISPLATIN\CYTARABINE\DEXAMETHASONE
     Indication: NON-HODGKIN^S LYMPHOMA
     Dosage: UNK, CYCLICAL (SECOND LINE THERAPY (R-DHAP)
     Route: 065
  12. CARMUSTINE;CYTARABINE;ETOPOSIDE;MELPHALAN [Suspect]
     Active Substance: CARMUSTINE\CYTARABINE\ETOPOSIDE\MELPHALAN
     Dosage: 60 MILLIGRAM/SQ. METER, CYCLICAL (15 MG/M2 ON DAY 2,3,4 AND 5 CYCLIC)
     Route: 065
  13. MELPHALAN. [Suspect]
     Active Substance: MELPHALAN
     Dosage: 140 MILLIGRAM/SQ. METER, CYCLICAL, ON DAY 2 TO 6
     Route: 065
  14. RITUXIMAB. [Suspect]
     Active Substance: RITUXIMAB
     Dosage: UNK
     Route: 065
  15. IFOSFAMIDE. [Suspect]
     Active Substance: IFOSFAMIDE
     Dosage: UNK
     Route: 065
  16. ETOPOSIDE. [Suspect]
     Active Substance: ETOPOSIDE
     Dosage: 200 MILLIGRAM/SQ. METER, CYCLICAL, ON DAY 2 TO 5
     Route: 065
  17. CARMUSTINE;CYTARABINE;ETOPOSIDE;MELPHALAN [Suspect]
     Active Substance: CARMUSTINE\CYTARABINE\ETOPOSIDE\MELPHALAN
     Dosage: 300 MILLIGRAM/SQ. METER, ONCE A DAY (ON DAY 1 CYCLIC),FULL DOSE BEAM
     Route: 065
  18. CARBOPLATIN\ETOPOSIDE\IFOSFAMIDE [Suspect]
     Active Substance: CARBOPLATIN\ETOPOSIDE\IFOSFAMIDE
     Indication: NON-HODGKIN^S LYMPHOMA
     Dosage: UNK
     Route: 065
  19. DOXORUBICIN [Suspect]
     Active Substance: DOXORUBICIN
     Indication: NON-HODGKIN^S LYMPHOMA
     Dosage: UNK, R-CHOP
     Route: 065
  20. CYCLOPHOSPHAMIDE. [Suspect]
     Active Substance: CYCLOPHOSPHAMIDE
     Indication: HAEMATOPOIETIC STEM CELL MOBILISATION
     Dosage: UNK,HIGH DOSE
     Route: 065
  21. CYCLOPHOSPHAMIDE. [Suspect]
     Active Substance: CYCLOPHOSPHAMIDE
     Dosage: UNK
     Route: 065
     Dates: start: 201308
  22. PREDNISONE. [Suspect]
     Active Substance: PREDNISONE
     Indication: NON-HODGKIN^S LYMPHOMA
     Dosage: UNK, R-CHOP
     Route: 065
  23. CYTARABINE. [Suspect]
     Active Substance: CYTARABINE
     Dosage: 200 MILLIGRAM/SQ. METER, CYCLICAL, 2 ? 200 MG/M2 ON DAY 2 TO 5 ON DAY 2,3,4 AND 5,LOW-DOSE BEAM
     Route: 065
  24. CARMUSTINE. [Suspect]
     Active Substance: CARMUSTINE
     Indication: NON-HODGKIN^S LYMPHOMA
     Dosage: 300 MILLIGRAM/SQ. METER
     Route: 065
  25. AMLODIPINE [Concomitant]
     Active Substance: AMLODIPINE BESYLATE
     Indication: HYPERTENSION
     Dosage: UNK
     Route: 065
  26. RITUXIMAB. [Suspect]
     Active Substance: RITUXIMAB
     Dosage: UNK,R-DHAP
     Route: 065
  27. CYCLOPHOSPHAMIDE. [Suspect]
     Active Substance: CYCLOPHOSPHAMIDE
     Indication: NON-HODGKIN^S LYMPHOMA
     Dosage: UNK,R-CHOP
     Route: 065
  28. CYTARABINE. [Suspect]
     Active Substance: CYTARABINE
     Dosage: 100 MILLIGRAM/SQ. METER, CYCLICAL, 2 ? 100 MG/M2 ON DAY 2,3,4,5
     Route: 065
  29. CARMUSTINE. [Suspect]
     Active Substance: CARMUSTINE
     Dosage: 60 MILLIGRAM/SQ. METER
     Route: 065
  30. CARMUSTINE;CYTARABINE;ETOPOSIDE;MELPHALAN [Suspect]
     Active Substance: CARMUSTINE\CYTARABINE\ETOPOSIDE\MELPHALAN
     Indication: NON-HODGKIN^S LYMPHOMA
     Dosage: 30 MILLIGRAM/SQ. METER, ON DAY 6 CYCLIC
     Route: 065
  31. CARMUSTINE;CYTARABINE;ETOPOSIDE;MELPHALAN [Suspect]
     Active Substance: CARMUSTINE\CYTARABINE\ETOPOSIDE\MELPHALAN
     Dosage: 400 MILLIGRAM/SQ. METER, ONCE A DAY (2 X 200 MG/M2 DAY 2-5, CYCLIC)
     Route: 065
  32. RITUXIMAB. [Suspect]
     Active Substance: RITUXIMAB
     Indication: NON-HODGKIN^S LYMPHOMA
     Dosage: UNK,R-CHOP
     Route: 065
  33. GANCICLOVIR. [Suspect]
     Active Substance: GANCICLOVIR
     Indication: CYTOMEGALOVIRUS TEST POSITIVE
  34. IFOSFAMIDE. [Suspect]
     Active Substance: IFOSFAMIDE
     Indication: NON-HODGKIN^S LYMPHOMA
     Dosage: UNK, R-ICE
     Route: 065
  35. CARMUSTINE. [Suspect]
     Active Substance: CARMUSTINE
     Dosage: 60 MILLIGRAM/SQ. METER, CYCLICAL, ON DAY 1
     Route: 065
  36. CARMUSTINE;CYTARABINE;ETOPOSIDE;MELPHALAN [Suspect]
     Active Substance: CARMUSTINE\CYTARABINE\ETOPOSIDE\MELPHALAN
     Dosage: 60 MILLIGRAM/SQ. METER, CYCLICAL (ON DAY 1 CYCLIC)
     Route: 065
  37. GANCICLOVIR. [Suspect]
     Active Substance: GANCICLOVIR
     Indication: CYTOMEGALOVIRUS INFECTION
     Dosage: UNK
     Route: 065
  38. MELPHALAN. [Suspect]
     Active Substance: MELPHALAN
     Indication: NON-HODGKIN^S LYMPHOMA
     Dosage: 30 MILLIGRAM/SQ. METER, CYCLICAL, ON DAY 6
     Route: 065
  39. RITUXIMAB. [Suspect]
     Active Substance: RITUXIMAB
     Dosage: UNK,R-ICE
     Route: 065
  40. CARBOPLATIN. [Suspect]
     Active Substance: CARBOPLATIN
     Indication: NON-HODGKIN^S LYMPHOMA
     Dosage: UNK, R-ICE
     Route: 065

REACTIONS (6)
  - Human herpesvirus 8 infection [Recovered/Resolved]
  - Product use in unapproved indication [Unknown]
  - Immunosuppression [Recovered/Resolved]
  - Off label use [Unknown]
  - Tinnitus [Unknown]
  - Kaposi^s sarcoma [Recovered/Resolved]

NARRATIVE: CASE EVENT DATE: 2013
